FAERS Safety Report 5761135-4 (Version None)
Quarter: 2008Q2

REPORT INFORMATION
  Report Type: 
  Country: None (occurrence: None)
  Receive Date: 20080606
  Receipt Date: 20080529
  Transmission Date: 20081010
  Serious: Yes (Hospitalization)
  Sender: FDA-Public Use
  Company Number: FR-BAYER-200819559GPV

PATIENT
  Age: 69 Year
  Sex: Female

DRUGS (12)
  1. CIPROFLOXACIN HCL [Suspect]
     Indication: DRUG USE FOR UNKNOWN INDICATION
     Route: 065
     Dates: end: 20080301
  2. PREVISCAN [Interacting]
     Indication: MYOCARDIAL ISCHAEMIA
     Dosage: TOTAL DAILY DOSE: 0.75 MG
     Route: 048
     Dates: start: 20020101, end: 20080303
  3. KARDEGIC [Interacting]
     Indication: PROPHYLAXIS
     Dosage: UNIT DOSE: 75 MG
     Route: 048
  4. LASILIX [Concomitant]
     Indication: CARDIAC FAILURE
     Route: 048
  5. ALDACTONE [Concomitant]
     Indication: CARDIAC FAILURE
     Route: 048
  6. CRESTOR [Concomitant]
     Indication: PROPHYLAXIS
     Route: 048
  7. DIGITALINE NATIVELLE [Concomitant]
     Indication: CARDIAC FAILURE
     Route: 048
  8. IMOVANE [Concomitant]
     Indication: DRUG USE FOR UNKNOWN INDICATION
     Route: 048
  9. ATACAND [Concomitant]
     Indication: HYPERTENSION
     Route: 048
  10. NEXIUM [Concomitant]
     Indication: DRUG USE FOR UNKNOWN INDICATION
     Route: 048
  11. CARDENSIEL [Concomitant]
     Indication: CARDIAC FAILURE
     Route: 048
  12. DOLIPRANE [Concomitant]
     Indication: DRUG USE FOR UNKNOWN INDICATION
     Route: 065

REACTIONS (2)
  - INTRA-ABDOMINAL HAEMATOMA [None]
  - OVERDOSE [None]
